FAERS Safety Report 16829978 (Version 1)
Quarter: 2019Q3

REPORT INFORMATION
  Report Type: Spontaneous
  Country: US (occurrence: US)
  Receive Date: 20190919
  Receipt Date: 20190919
  Transmission Date: 20191005
  Serious: No
  Sender: FDA-Public Use
  Company Number: US-TARO-2018TAR00704

PATIENT
  Sex: Male

DRUGS (2)
  1. DESONIDE OINTMENT USP 0.05% [Suspect]
     Active Substance: DESONIDE
     Dosage: UNK
     Route: 061
     Dates: end: 201806
  2. DESONIDE OINTMENT USP 0.05% [Suspect]
     Active Substance: DESONIDE
     Indication: DRY SKIN
     Dosage: UNK
     Route: 061
     Dates: start: 201806

REACTIONS (5)
  - Product quality issue [Not Recovered/Not Resolved]
  - Erythema [Not Recovered/Not Resolved]
  - Incorrect product administration duration [Not Recovered/Not Resolved]
  - Skin disorder [Not Recovered/Not Resolved]
  - Drug ineffective for unapproved indication [Not Recovered/Not Resolved]

NARRATIVE: CASE EVENT DATE: 201806
